FAERS Safety Report 22147725 (Version 1)
Quarter: 2023Q1

REPORT INFORMATION
  Report Type: Spontaneous
  Country: US (occurrence: None)
  Receive Date: 20230328
  Receipt Date: 20230328
  Transmission Date: 20230418
  Serious: No
  Sender: FDA-Public Use
  Company Number: None

PATIENT
  Age: 69 Year
  Sex: Female
  Weight: 58.5 kg

DRUGS (5)
  1. ISOVUE 370 [Suspect]
     Active Substance: IOPAMIDOL
     Indication: Computerised tomogram abdomen
     Route: 042
     Dates: start: 20230328, end: 20230328
  2. ISOVUE 370 [Suspect]
     Active Substance: IOPAMIDOL
     Indication: Computerised tomogram pelvis
  3. MORPHINE [Concomitant]
     Active Substance: MORPHINE
     Dates: start: 20230328, end: 20230328
  4. ONDANSETRON [Concomitant]
     Active Substance: ONDANSETRON
     Dates: start: 20230328, end: 20230328
  5. PANTOPRAZOLE SODIUM [Concomitant]
     Active Substance: PANTOPRAZOLE SODIUM
     Dates: start: 20230328, end: 20230328

REACTIONS (9)
  - Abdominal discomfort [None]
  - Nausea [None]
  - Lethargy [None]
  - Wheezing [None]
  - Throat tightness [None]
  - Dyspnoea [None]
  - Contrast media allergy [None]
  - Hypersensitivity [None]
  - Product quality issue [None]

NARRATIVE: CASE EVENT DATE: 20230328
